FAERS Safety Report 10890143 (Version 1)
Quarter: 2015Q1

REPORT INFORMATION
  Report Type: Spontaneous
  Country: NL (occurrence: NL)
  Receive Date: 20150305
  Receipt Date: 20150305
  Transmission Date: 20150721
  Serious: Yes (Hospitalization)
  Sender: FDA-Public Use
  Company Number: NL-009507513-1502NLD010194

PATIENT
  Age: 42 Year
  Sex: Female
  Weight: 79 kg

DRUGS (3)
  1. INSULIN LISPRO [Concomitant]
     Active Substance: INSULIN LISPRO
     Dosage: 28 UNITS A DAY
     Dates: start: 20130204
  2. SIMVASTATIN. [Suspect]
     Active Substance: SIMVASTATIN
     Indication: DIABETES MELLITUS
     Dosage: DAILY 40 MG
     Route: 048
     Dates: start: 20050201, end: 20050201
  3. CITALOPRAM HYDROBROMIDE. [Concomitant]
     Active Substance: CITALOPRAM HYDROBROMIDE
     Dosage: 20 MG PER DAY
     Route: 058
     Dates: start: 20130204

REACTIONS (10)
  - Aphasia [Unknown]
  - Abdominal pain [Unknown]
  - Depressed mood [Unknown]
  - Disturbance in attention [Unknown]
  - Myalgia [Unknown]
  - Arthralgia [Unknown]
  - Dyspnoea [Unknown]
  - Fatigue [Unknown]
  - Malaise [Unknown]
  - Memory impairment [Unknown]

NARRATIVE: CASE EVENT DATE: 20110201
